FAERS Safety Report 6194850-1 (Version None)
Quarter: 2009Q2

REPORT INFORMATION
  Report Type: 
  Country: None (occurrence: None)
  Receive Date: 20090519
  Receipt Date: 20090513
  Transmission Date: 20091009
  Serious: Yes (Other)
  Sender: FDA-Public Use
  Company Number: ES-ASTRAZENECA-2009AC01385

PATIENT
  Age: 71 Year
  Sex: Female

DRUGS (1)
  1. SEROQUEL [Suspect]
     Route: 048
     Dates: start: 20081118, end: 20081119

REACTIONS (5)
  - ABASIA [None]
  - ABDOMINAL DISTENSION [None]
  - DIZZINESS [None]
  - SOMNOLENCE [None]
  - UNRESPONSIVE TO STIMULI [None]
